FAERS Safety Report 13156156 (Version 1)
Quarter: 2017Q1

REPORT INFORMATION
  Report Type: Spontaneous
  Country: GB (occurrence: GB)
  Receive Date: 20170126
  Receipt Date: 20170126
  Transmission Date: 20170428
  Serious: Yes (Other)
  Sender: FDA-Public Use
  Company Number: GB-PFIZER INC-2017029648

PATIENT
  Sex: Female

DRUGS (2)
  1. TETRACYCLINE HCL [Suspect]
     Active Substance: TETRACYCLINE HYDROCHLORIDE
     Dosage: UNK
  2. VITAMIN A [Suspect]
     Active Substance: VITAMIN A
     Dosage: LOW DOSE

REACTIONS (1)
  - Benign intracranial hypertension [Unknown]
